FAERS Safety Report 20663630 (Version 1)
Quarter: 2022Q2

REPORT INFORMATION
  Report Type: Spontaneous
  Country: US (occurrence: None)
  Receive Date: 20220401
  Receipt Date: 20220401
  Transmission Date: 20220721
  Serious: No
  Sender: FDA-Public Use
  Company Number: None

PATIENT
  Age: 71 Year
  Sex: Male

DRUGS (1)
  1. DUPIXENT [Suspect]
     Active Substance: DUPILUMAB
     Indication: Asthma
     Dosage: FREQUENCY : EVERY OTHER WEEK;?
     Route: 058
     Dates: start: 202203

REACTIONS (5)
  - Device malfunction [None]
  - Incorrect dose administered by device [None]
  - Injection site extravasation [None]
  - Injection site pain [None]
  - Puncture site reaction [None]

NARRATIVE: CASE EVENT DATE: 20220331
